FAERS Safety Report 11158800 (Version 1)
Quarter: 2015Q2

REPORT INFORMATION
  Report Type: Spontaneous
  Country: US (occurrence: None)
  Receive Date: 20150602
  Receipt Date: 20150602
  Transmission Date: 20150821
  Serious: No
  Sender: FDA-Public Use
  Company Number: None

PATIENT
  Age: 38 Year
  Sex: Male
  Weight: 118.84 kg

DRUGS (8)
  1. OMEPRAZOLE. [Concomitant]
     Active Substance: OMEPRAZOLE
  2. ALBUTEROL. [Concomitant]
     Active Substance: ALBUTEROL
  3. TOPIRAMATE. [Concomitant]
     Active Substance: TOPIRAMATE
  4. TOPIRAMATE. [Suspect]
     Active Substance: TOPIRAMATE
     Indication: SEIZURE
     Route: 048
     Dates: start: 20141130, end: 20150601
  5. AMLODIPINE BESYLATE. [Concomitant]
     Active Substance: AMLODIPINE BESYLATE
  6. ARTIFICIAL TEARS POLYCINYL ALCOHOL INSTILL [Concomitant]
  7. HYDROCODONE/ACETAMINOPHEN [Concomitant]
     Active Substance: ACETAMINOPHEN\HYDROCODONE
  8. PANCRELIPASE (EQV-ZENPEP) [Concomitant]

REACTIONS (3)
  - Paraesthesia oral [None]
  - Aphasia [None]
  - Dysgeusia [None]

NARRATIVE: CASE EVENT DATE: 20141130
